FAERS Safety Report 9416619 (Version 1)
Quarter: 2013Q3

REPORT INFORMATION
  Report Type: Spontaneous
  Country: NL (occurrence: NL)
  Receive Date: 20130719
  Receipt Date: 20130719
  Transmission Date: 20140515
  Serious: Yes (Hospitalization)
  Sender: FDA-Public Use
  Company Number: INT_00273_2013

PATIENT
  Age: 58 Year
  Sex: Male

DRUGS (8)
  1. TENIPOSIDE [Suspect]
     Indication: MALIGNANT LYMPHOID NEOPLASM
     Route: 042
     Dates: start: 20130302, end: 20130304
  2. CARMUSTINE [Suspect]
     Indication: MALIGNANT LYMPHOID NEOPLASM
     Route: 042
     Dates: start: 20130305, end: 20130305
  3. RITUXIMAB (RITUXIMAB) [Suspect]
     Indication: MALIGNANT LYMPHOID NEOPLASM
     Route: 042
     Dates: start: 20130301, end: 20130308
  4. METHOTREXATE (METHOTREXATE) [Suspect]
     Indication: MALIGNANT LYMPHOID NEOPLASM
     Route: 042
     Dates: start: 20130302, end: 20130302
  5. METHYLPREDNISOLONE (METHYLPREDNISOLONE) [Suspect]
     Indication: MALIGNANT LYMPHOID NEOPLASM
     Route: 042
     Dates: start: 20130302, end: 20130306
  6. FLUCONAZOLE [Concomitant]
  7. DEXAMETHASONE [Concomitant]
  8. CIPROFLOXACIN [Concomitant]

REACTIONS (3)
  - Febrile neutropenia [None]
  - Pneumonia [None]
  - Influenza [None]
